FAERS Safety Report 10469278 (Version 1)
Quarter: 2014Q3

REPORT INFORMATION
  Report Type: Spontaneous
  Country: IE (occurrence: IE)
  Receive Date: 20140923
  Receipt Date: 20140923
  Transmission Date: 20150326
  Serious: Yes (Death, Hospitalization, Other)
  Sender: FDA-Public Use
  Company Number: IE-JNJFOC-20140915596

PATIENT
  Age: 54 Year
  Sex: Female

DRUGS (3)
  1. PARACETAMOL [Suspect]
     Active Substance: ACETAMINOPHEN
     Route: 065
  2. PARACETAMOL [Suspect]
     Active Substance: ACETAMINOPHEN
     Indication: PRODUCT USED FOR UNKNOWN INDICATION
     Route: 065
  3. SODIUM VALPROATE [Concomitant]
     Active Substance: VALPROATE SODIUM
     Indication: BIPOLAR DISORDER
     Route: 065

REACTIONS (9)
  - Overdose [Unknown]
  - Hepatic necrosis [Fatal]
  - Upper gastrointestinal haemorrhage [Unknown]
  - Encephalopathy [Fatal]
  - Coagulopathy [Unknown]
  - Jaundice [Unknown]
  - Acute hepatic failure [Fatal]
  - Toxicity to various agents [Unknown]
  - Transaminases increased [Unknown]
